FAERS Safety Report 4384699-4 (Version None)
Quarter: 2004Q2

REPORT INFORMATION
  Report Type: 
  Country: None (occurrence: None)
  Receive Date: 20040623
  Receipt Date: 20040623
  Transmission Date: 20050107
  Serious: Yes (Other)
  Sender: FDA-Public Use
  Company Number: None

PATIENT
  Sex: Male
  Weight: 37 kg

DRUGS (3)
  1. DEFEROXAMINE 500 MG ABBOTT [Suspect]
     Indication: THALASSAEMIA
     Dosage: 1500 MG SQ MONDAY THROUGH FRIDAY
     Route: 058
     Dates: start: 20040621
  2. DEFEROXAMINE 2000 MG ABBOTT [Suspect]
  3. METHYLPREDNISONE [Concomitant]

REACTIONS (3)
  - INJECTION SITE BURNING [None]
  - INJECTION SITE IRRITATION [None]
  - PHARMACEUTICAL PRODUCT COMPLAINT [None]
